FAERS Safety Report 12405517 (Version 1)
Quarter: 2016Q2

REPORT INFORMATION
  Report Type: Other
  Country: MK (occurrence: MK)
  Receive Date: 20160525
  Receipt Date: 20160525
  Transmission Date: 20160815
  Serious: Yes (Hospitalization)
  Sender: FDA-Public Use
  Company Number: MK-LUPIN PHARMACEUTICALS INC.-2016-02077

PATIENT
  Age: 27 Year
  Sex: Male

DRUGS (1)
  1. TRAMADOL. [Suspect]
     Active Substance: TRAMADOL
     Indication: PRODUCT USED FOR UNKNOWN INDICATION
     Dosage: APPROXIMATELY 500 - 1000 MG TWO TO THREE TIMES WEEKLY
     Route: 065

REACTIONS (3)
  - Withdrawal syndrome [Recovered/Resolved]
  - Drug abuse [Unknown]
  - Generalised tonic-clonic seizure [Recovered/Resolved]
